FAERS Safety Report 13724763 (Version 1)
Quarter: 2017Q3

REPORT INFORMATION
  Report Type: Spontaneous
  Country: US (occurrence: US)
  Receive Date: 20170706
  Receipt Date: 20170706
  Transmission Date: 20171127
  Serious: Yes (Hospitalization)
  Sender: FDA-Public Use
  Company Number: US-FRESENIUS KABI-FK201705779

PATIENT
  Age: 8 Year
  Sex: Male

DRUGS (3)
  1. IFOSFAMIDE (MANUFACTURER UNKNOWN) [Suspect]
     Active Substance: IFOSFAMIDE
     Indication: GERM CELL CANCER
     Route: 065
  2. CISPLATIN (MANUFACTURER UNKNOWN) [Suspect]
     Active Substance: CISPLATIN
     Indication: GERM CELL CANCER
     Route: 065
  3. TENIPOSIDE. [Suspect]
     Active Substance: TENIPOSIDE
     Indication: GERM CELL CANCER
     Route: 065

REACTIONS (1)
  - Cerebral salt-wasting syndrome [Unknown]
